FAERS Safety Report 16188023 (Version 1)
Quarter: 2019Q2

REPORT INFORMATION
  Report Type: Spontaneous
  Country: US (occurrence: US)
  Receive Date: 20190412
  Receipt Date: 20190412
  Transmission Date: 20190711
  Serious: Yes (Other)
  Sender: FDA-Public Use
  Company Number: US-ROCHE-2301499

PATIENT
  Age: 81 Year
  Sex: Female

DRUGS (1)
  1. HEMLIBRA [Suspect]
     Active Substance: EMICIZUMAB-KXWH
     Indication: PRODUCT USED FOR UNKNOWN INDICATION
     Dosage: STRENGTH: 105MG/0.7ML SDV INJECTION
     Route: 065
     Dates: start: 201902

REACTIONS (2)
  - Ageusia [Unknown]
  - Dysphagia [Unknown]

NARRATIVE: CASE EVENT DATE: 20190405
